FAERS Safety Report 8581420-0 (Version None)
Quarter: 2012Q3

REPORT INFORMATION
  Report Type: 
  Country: None (occurrence: None)
  Receive Date: 20120809
  Receipt Date: 20120731
  Transmission Date: 20120928
  Serious: Yes (Hospitalization)
  Sender: FDA-Public Use
  Company Number: US-BAYER-2012-078791

PATIENT
  Age: 48 Year
  Sex: Female
  Weight: 70.295 kg

DRUGS (11)
  1. MUCINEX [Concomitant]
  2. MULTI-VITAMIN [Concomitant]
     Dosage: 1 TABLET, DAILY
     Route: 048
  3. PATANOL [Concomitant]
     Dosage: 1 DROP BOTH EYES, PRN
     Route: 061
  4. DROSPIRENONE AND ETHINYL ESTRADIOL [Suspect]
  5. TYLENOL [Concomitant]
  6. BUTALBITAL ACETAMINOPHEN AND CAFFEINE [Concomitant]
     Dosage: 50-325-40 MG
     Route: 048
  7. IBUPROFEN [Concomitant]
  8. YAZ [Suspect]
     Dosage: UNK
  9. VITAMIN D [Concomitant]
     Dosage: 400 IU, DAILY
     Route: 048
  10. CLARITIN [Concomitant]
     Dosage: 10 MG, DAILY
     Route: 048
  11. FLONASE [Concomitant]
     Dosage: 1 SPRAY BOTH NOSTRILS, DAILY
     Route: 061

REACTIONS (1)
  - INTRACRANIAL VENOUS SINUS THROMBOSIS [None]
